FAERS Safety Report 8181540-9 (Version None)
Quarter: 2012Q1

REPORT INFORMATION
  Report Type: 
  Country: None (occurrence: None)
  Receive Date: 20120302
  Receipt Date: 20120301
  Transmission Date: 20120608
  Serious: Yes (Death, Hospitalization, Other)
  Sender: FDA-Public Use
  Company Number: US-ROXANE LABORATORIES, INC.-2011-RO-00815RO

PATIENT
  Sex: Male
  Weight: 65 kg

DRUGS (18)
  1. ENZASTAURIN [Suspect]
     Dosage: 500 MG
     Route: 048
     Dates: start: 20090124, end: 20090321
  2. REGLAN [Concomitant]
     Dates: start: 20081216
  3. MIRALAX [Concomitant]
     Dates: start: 20090101
  4. VINCRISTINE [Suspect]
     Indication: DIFFUSE LARGE B-CELL LYMPHOMA
     Route: 042
     Dates: start: 20090122, end: 20090312
  5. MILK OF MAGNESIA TAB [Concomitant]
     Dates: start: 20090101
  6. KYTRIL [Concomitant]
     Dates: start: 20090122
  7. ZOFRAN [Concomitant]
     Dates: start: 20081229
  8. ENZASTAURIN [Suspect]
     Indication: DIFFUSE LARGE B-CELL LYMPHOMA
     Dosage: 1125 MG
     Route: 048
     Dates: start: 20090123, end: 20090123
  9. DOXORUBICIN HCL [Suspect]
     Indication: DIFFUSE LARGE B-CELL LYMPHOMA
     Route: 042
     Dates: start: 20090122, end: 20090312
  10. AMBIEN [Concomitant]
     Dates: start: 20090129
  11. DOCUSATE SODIUM [Concomitant]
     Dates: start: 20090129
  12. CIPRO [Concomitant]
     Indication: INFECTION PROPHYLAXIS
     Dates: start: 20090319
  13. NEXIUM [Concomitant]
     Dates: start: 20081216
  14. PREDNISONE TAB [Suspect]
     Indication: DIFFUSE LARGE B-CELL LYMPHOMA
     Dosage: 100 MG
     Route: 048
     Dates: start: 20090126, end: 20090316
  15. COUMADIN [Concomitant]
     Indication: THROMBOSIS PROPHYLAXIS
     Dates: start: 20090123
  16. RITUXIMAB [Suspect]
     Indication: DIFFUSE LARGE B-CELL LYMPHOMA
     Route: 042
     Dates: start: 20090122, end: 20090312
  17. CYCLOPHOSPHAMIDE [Suspect]
     Indication: DIFFUSE LARGE B-CELL LYMPHOMA
     Route: 042
     Dates: start: 20090122, end: 20090312
  18. ALLOPURINOL [Concomitant]
     Indication: TUMOUR LYSIS SYNDROME
     Dates: start: 20090122

REACTIONS (8)
  - ASTHENIA [None]
  - DUODENITIS [None]
  - STAPHYLOCOCCAL INFECTION [None]
  - FEBRILE NEUTROPENIA [None]
  - BACTERAEMIA [None]
  - PYREXIA [None]
  - PANCYTOPENIA [None]
  - RENAL FAILURE ACUTE [None]
